FAERS Safety Report 17336712 (Version 1)
Quarter: 2020Q1

REPORT INFORMATION
  Report Type: Spontaneous
  Country: JP (occurrence: JP)
  Receive Date: 20200128
  Receipt Date: 20200128
  Transmission Date: 20200409
  Serious: Yes (Hospitalization)
  Sender: FDA-Public Use
  Company Number: JP-MYLANLABS-2020M1007721

PATIENT
  Sex: Male
  Weight: 62.4 kg

DRUGS (1)
  1. GRANISETRON INFUSION BAG 3MG/100ML ^MYLAN^ [Suspect]
     Active Substance: GRANISETRON
     Indication: PREMEDICATION
     Dosage: 3 MILLIGRAM, QD
     Route: 042

REACTIONS (1)
  - Chills [Recovered/Resolved]
